FAERS Safety Report 4648485-X (Version None)
Quarter: 2005Q2

REPORT INFORMATION
  Report Type: 
  Country: None (occurrence: None)
  Receive Date: 20050427
  Receipt Date: 20050411
  Transmission Date: 20051028
  Serious: Yes (Hospitalization)
  Sender: FDA-Public Use
  Company Number: 2005-DE-01405GD

PATIENT
  Age: 57 Year
  Sex: Male

DRUGS (19)
  1. ACETAMINOPHEN [Suspect]
     Dosage: DAILY DOSES OF 2 G, 3G, 1G, 3G, AND 1 G ON 5 CONSECUTIVE DAYS AFTER SURGERY WITHOUT INTERRUPTION (NR
  2. FUROSEMIDE [Suspect]
     Dosage: 20 MG (NR), NR
  3. AMIODARONE HCL [Suspect]
     Indication: ATRIAL FIBRILLATION
     Dosage: BOLUS OF 150 MG WITHIN 30 MIN FOLLOWED BY INFUSION OF 60 MG/H FOR 6 HOURS AND THEREAFTER 30 MG/H (NR
     Route: 042
  4. AMIODARONE HCL [Suspect]
     Indication: TACHYCARDIA
     Dosage: BOLUS OF 150 MG WITHIN 30 MIN FOLLOWED BY INFUSION OF 60 MG/H FOR 6 HOURS AND THEREAFTER 30 MG/H (NR
     Route: 042
  5. CAPTOPRIL [Suspect]
     Dosage: 3.125 MG (NR), NR
  6. METOPROLOL TARTRATE [Suspect]
     Dosage: 7.5 MG (NR); IV
     Route: 042
  7. ACETYLSALICYLIC ACID (ACETYLSALICYLIC ACID 'BAYER') [Concomitant]
  8. LOW-MOLECULAR WEIGHT HEPARIN (HEPARIN) [Concomitant]
  9. TORSEMIDE (TORASEMIDE) (ACETYLCYSTEINE) [Concomitant]
  10. NITROGLYCERIN (MORPHINE-HCL) [Concomitant]
  11. DIGOXIN [Concomitant]
  12. VENLAFAXINE HCL [Concomitant]
  13. BISOPROLOL FUMARATE [Concomitant]
  14. ENALAPRIL MALEATE [Concomitant]
  15. .... [Concomitant]
  16. .... [Concomitant]
  17. .... [Concomitant]
  18. ... [Concomitant]
  19. .... [Concomitant]

REACTIONS (8)
  - ATRIAL FIBRILLATION [None]
  - CARDIAC PROCEDURE COMPLICATION [None]
  - DRUG TOXICITY [None]
  - HEPATOCELLULAR DAMAGE [None]
  - HEPATOTOXICITY [None]
  - REACTION TO MEDICAL AGENT PRESERVATIVES [None]
  - TACHYCARDIA [None]
  - THERAPY NON-RESPONDER [None]
